FAERS Safety Report 24764959 (Version 1)
Quarter: 2024Q4

REPORT INFORMATION
  Report Type: Spontaneous
  Country: ZA (occurrence: ZA)
  Receive Date: 20241223
  Receipt Date: 20241223
  Transmission Date: 20250114
  Serious: No
  Sender: SANOFI AVENTIS
  Company Number: ZA-SA-2024SA376168

PATIENT
  Age: 30 Year
  Sex: Female

DRUGS (6)
  1. LEFLUNOMIDE [Suspect]
     Active Substance: LEFLUNOMIDE
     Dosage: 20 MG, QD
     Dates: start: 202310, end: 202401
  2. PREDNISONE [Suspect]
     Active Substance: PREDNISONE
     Dosage: 20 MG, QD
     Dates: start: 202411
  3. CHLOROQUINE [Concomitant]
     Active Substance: CHLOROQUINE
     Dosage: 200 MG
     Dates: start: 202306
  4. ETORICOXIB [Concomitant]
     Active Substance: ETORICOXIB
     Dosage: 60 MG , QD
     Dates: start: 202306
  5. METHOTREXATE [Concomitant]
     Active Substance: METHOTREXATE
     Dosage: 25 MG, QW
     Dates: start: 202306
  6. HUMIRA [Concomitant]
     Active Substance: ADALIMUMAB
     Dosage: 40 MG, QOW
     Dates: start: 202403

REACTIONS (6)
  - Loss of personal independence in daily activities [Unknown]
  - Pectus excavatum [Unknown]
  - Chest X-ray abnormal [Unknown]
  - Condition aggravated [Unknown]
  - Toxicity to various agents [Unknown]
  - Drug ineffective [Unknown]
